FAERS Safety Report 11486736 (Version 1)
Quarter: 2015Q3

REPORT INFORMATION
  Report Type: Spontaneous
  Country: US (occurrence: US)
  Receive Date: 20150910
  Receipt Date: 20150910
  Transmission Date: 20151125
  Serious: No
  Sender: FDA-Public Use
  Company Number: US-ASTRAZENECA-2015SE82023

PATIENT
  Sex: Female

DRUGS (9)
  1. RESTORIL [Suspect]
     Active Substance: TEMAZEPAM
  2. SUDAFED [Concomitant]
     Active Substance: PSEUDOEPHEDRINE HYDROCHLORIDE
  3. SEROQUEL [Suspect]
     Active Substance: QUETIAPINE FUMARATE
     Route: 048
  4. HYDROCODONE [Concomitant]
     Active Substance: HYDROCODONE
  5. KLONOPIN [Concomitant]
     Active Substance: CLONAZEPAM
  6. CHANTIX [Suspect]
     Active Substance: VARENICLINE TARTRATE
  7. LAMICTAL [Concomitant]
     Active Substance: LAMOTRIGINE
  8. ADVIL [Concomitant]
     Active Substance: IBUPROFEN
  9. BENADRYL [Concomitant]
     Active Substance: DIPHENHYDRAMINE HYDROCHLORIDE

REACTIONS (13)
  - Myalgia [Unknown]
  - Head titubation [Unknown]
  - Headache [Unknown]
  - Asthenopia [Unknown]
  - Bipolar I disorder [Unknown]
  - Pain [Unknown]
  - Anxiety [Unknown]
  - Thyroid disorder [Unknown]
  - Panic attack [Unknown]
  - Intentional product misuse [Unknown]
  - Hypersomnia [Unknown]
  - Weight increased [Unknown]
  - Phobia [Unknown]
